FAERS Safety Report 9322160 (Version 1)
Quarter: 2013Q2

REPORT INFORMATION
  Report Type: Spontaneous
  Country: NO (occurrence: None)
  Receive Date: 20130529
  Receipt Date: 20130529
  Transmission Date: 20140414
  Serious: Yes (Hospitalization)
  Sender: FDA-Public Use
  Company Number: FK201301665

PATIENT
  Age: 9 Year
  Sex: Female
  Weight: 34.8 kg

DRUGS (13)
  1. ONDANSETRON [Suspect]
     Indication: PROPHYLAXIS OF NAUSEA AND VOMITING
     Route: 042
     Dates: start: 20100217, end: 20100217
  2. DOXORUBICIN [Suspect]
     Indication: NEOPLASM MALIGNANT
     Route: 042
     Dates: start: 20100217, end: 20100218
  3. COSMEGEN [Suspect]
     Indication: NEOPLASM MALIGNANT
     Dosage: 1.9 MG, 1 IN 1 TOTAL, INTRAVENOUS (NOT OTHERWISE SPECIFIED)
     Route: 042
     Dates: start: 20100217, end: 20100217
  4. VINCRISTINE SULFATE [Concomitant]
     Indication: NEOPLASM MALIGNANT
     Dosage: 1.9 MG, 1 IN 1 TOTAL, INTRAVENOUS (NOT OTHERWISE SPECIFIED)
     Route: 042
     Dates: start: 20100217, end: 20100217
  5. APREPITANT [Suspect]
     Indication: PROPHYLAXIS OF NAUSEA AND VOMITING
     Dosage: 89 MG, 1 IN 1 TOTAL, ORAL
     Route: 048
     Dates: start: 20100217, end: 20100217
  6. ONDANSETRON (ONDANSETRON) [Concomitant]
  7. SULFAMETHOXAZOLE (+) TRIMETHOPRIM (SULFAMETHOXAZOLE, TRIMETHOPRIM, TRIMETHOPRIM, SULFAMETHOXAZOLE) (SULFAMETHOXAZOLE, TRIMETHOPRIM, TRIMETHOPRIM, SULFAMETHOXAZOLE) [Concomitant]
  8. OMEPRAZOLE (OMEPRAZOLE) [Concomitant]
  9. DEXAMETHASONE (DEXAMETHASONE) [Concomitant]
  10. IFOSFAMIDE (IFOSFAMIDE) [Concomitant]
  11. IMPORTAL (LACTITOL) (LACTITOL) [Concomitant]
  12. LANSOPRAZOLE (LANSOPRAZOLE) [Concomitant]
  13. RANITIDINE (RANITIDINE) [Concomitant]

REACTIONS (4)
  - Febrile neutropenia [None]
  - Vomiting [None]
  - Oral pain [None]
  - Pallor [None]
